FAERS Safety Report 15092149 (Version 2)
Quarter: 2020Q1

REPORT INFORMATION
  Report Type: Spontaneous
  Country: AU (occurrence: AU)
  Receive Date: 20180629
  Receipt Date: 20200204
  Transmission Date: 20200409
  Serious: Yes (Death, Hospitalization, Other)
  Sender: FDA-Public Use
  Company Number: AU-PFIZER INC-2018258764

PATIENT
  Age: 77 Year
  Sex: Male

DRUGS (4)
  1. METHOTREXATE (METHOTREXATE SODIUM) [Suspect]
     Active Substance: METHOTREXATE SODIUM
     Indication: PSORIASIS
     Dosage: 2 TABLETS, DAILY FOR 5 DAYS
     Dates: start: 2015
  2. METHOTREXATE (METHOTREXATE SODIUM) [Suspect]
     Active Substance: METHOTREXATE SODIUM
     Indication: PSORIASIS
  3. FRUSEMIDE /00032601/ [Concomitant]
     Active Substance: FUROSEMIDE
  4. FOLIC ACID. [Concomitant]
     Active Substance: FOLIC ACID

REACTIONS (35)
  - Drug monitoring procedure incorrectly performed [Fatal]
  - Ulcer [Unknown]
  - Pallor [Unknown]
  - Malaise [Unknown]
  - Oropharyngeal pain [Unknown]
  - Abdominal distension [Unknown]
  - Mitral valve calcification [Unknown]
  - Intestinal obstruction [Unknown]
  - Renal artery arteriosclerosis [Unknown]
  - Acidosis [Unknown]
  - Confusional state [Unknown]
  - Dyspnoea [Unknown]
  - Hypotension [Unknown]
  - Sepsis [Unknown]
  - Body temperature fluctuation [Unknown]
  - Diarrhoea [Unknown]
  - Arteriosclerosis coronary artery [Unknown]
  - C-reactive protein increased [Unknown]
  - Contraindicated product prescribed [Fatal]
  - Toxicity to various agents [Fatal]
  - Renal failure [Unknown]
  - Bronchitis fungal [Unknown]
  - Renal artery stenosis [Unknown]
  - Rash [Unknown]
  - Lethargy [Unknown]
  - Tremor [Unknown]
  - Product dispensing error [Fatal]
  - Unresponsive to stimuli [Unknown]
  - Bone marrow failure [Unknown]
  - Anaemia [Unknown]
  - Emphysema [Unknown]
  - Product prescribing error [Fatal]
  - Renal cell carcinoma [Unknown]
  - Condition aggravated [Unknown]
  - Blister [Unknown]

NARRATIVE: CASE EVENT DATE: 20150129
